FAERS Safety Report 12985091 (Version 1)
Quarter: 2016Q4

REPORT INFORMATION
  Report Type: Spontaneous
  Country: US (occurrence: US)
  Receive Date: 20161129
  Receipt Date: 20161129
  Transmission Date: 20170207
  Serious: No
  Sender: FDA-Public Use
  Company Number: US-JUBILANT HOLLISTERSTIER LLC-1060216

PATIENT
  Age: 13 Year
  Sex: Male

DRUGS (1)
  1. POSITIVE SKIN TEST CONTROL - HISTAMINE [Suspect]
     Active Substance: HISTAMINE
     Indication: ALLERGY TEST
     Dates: start: 20161004, end: 20161004

REACTIONS (1)
  - Drug ineffective [Unknown]

NARRATIVE: CASE EVENT DATE: 20161004
